FAERS Safety Report 8910131 (Version 1)
Quarter: 2012Q4

REPORT INFORMATION
  Report Type: 
  Country: US (occurrence: US)
  Receive Date: 20121115
  Receipt Date: 20121115
  Transmission Date: 20130627
  Serious: Yes (Hospitalization)
  Sender: FDA-Public Use
  Company Number: US-BRISTOL-MYERS SQUIBB COMPANY-17104233

PATIENT
  Sex: Female

DRUGS (13)
  1. COUMADIN [Suspect]
     Indication: ATRIAL FIBRILLATION
     Dosage: interr for 7 months last year
restarted with 5mg-Mon,Wed,Fri 
2.5mg-Tue,Thur,Sat,Sun
  2. PRAVACHOL [Concomitant]
  3. GLIPIZIDE [Concomitant]
  4. ATENOLOL [Concomitant]
  5. NORVASC [Concomitant]
  6. FOLIC ACID [Concomitant]
  7. MONOPRIL [Concomitant]
  8. VITAMIN B6 [Concomitant]
  9. MULTIVITAMIN [Concomitant]
  10. CYANOCOBALAMIN [Concomitant]
  11. AMBIEN [Concomitant]
  12. MACRODANTIN [Concomitant]
  13. ARIMIDEX [Concomitant]
     Indication: NEOPLASM MALIGNANT

REACTIONS (2)
  - Pneumonia [Unknown]
  - International normalised ratio increased [Recovered/Resolved]
